FAERS Safety Report 16465644 (Version 1)
Quarter: 2019Q2

REPORT INFORMATION
  Report Type: Spontaneous
  Country: US (occurrence: US)
  Receive Date: 20190621
  Receipt Date: 20190621
  Transmission Date: 20190711
  Serious: No
  Sender: FDA-Public Use
  Company Number: US-ASTRAZENECA-2019SE78036

PATIENT
  Age: 69 Year
  Sex: Male
  Weight: 77.1 kg

DRUGS (1)
  1. TUDORZA PRESSAIR [Suspect]
     Active Substance: ACLIDINIUM BROMIDE
     Indication: DYSPNOEA
     Route: 055
     Dates: start: 20190425, end: 20190509

REACTIONS (6)
  - Product use in unapproved indication [Unknown]
  - Product dose omission [Recovered/Resolved]
  - Aphonia [Not Recovered/Not Resolved]
  - Parkinson^s disease [Unknown]
  - Device failure [Unknown]
  - Off label use [Unknown]

NARRATIVE: CASE EVENT DATE: 2019
